FAERS Safety Report 8672041 (Version 3)
Quarter: 2012Q4

REPORT INFORMATION
  Report Type: 
  Country: BR (occurrence: BR)
  Receive Date: 20120719
  Receipt Date: 20121221
  Transmission Date: 20130627
  Serious: Yes (Life-Threatening, Hospitalization, Other)
  Sender: FDA-Public Use
  Company Number: BR-BIOGENIDEC-2012BI025020

PATIENT
  Age: 26 Year
  Sex: Female
  Weight: 70 kg

DRUGS (4)
  1. TYSABRI [Suspect]
     Indication: MULTIPLE SCLEROSIS
     Route: 042
     Dates: start: 20090701, end: 20120620
  2. TYSABRI [Suspect]
     Indication: MULTIPLE SCLEROSIS
     Route: 042
     Dates: start: 20120920
  3. CONTRACEPTIVE [Concomitant]
     Route: 048
     Dates: start: 2003
  4. ANTIDEPRESSANT [Concomitant]
     Route: 048
     Dates: start: 2005

REACTIONS (3)
  - Urinary tract infection [Recovered/Resolved]
  - Infection [Recovered/Resolved]
  - Coma [Recovered/Resolved]
